FAERS Safety Report 13267470 (Version 2)
Quarter: 2017Q2

REPORT INFORMATION
  Report Type: Spontaneous
  Country: US (occurrence: US)
  Receive Date: 20170224
  Receipt Date: 20170406
  Transmission Date: 20170830
  Serious: Yes (Disabling)
  Sender: FDA-Public Use
  Company Number: US-GLENMARK PHARMACEUTICALS-2017GMK026455

PATIENT

DRUGS (3)
  1. FIORICET [Concomitant]
     Active Substance: ACETAMINOPHEN\BUTALBITAL\CAFFEINE
     Indication: PRODUCT USED FOR UNKNOWN INDICATION
     Dosage: INTERMITTENT
     Route: 048
  2. IMIQUIMOD. [Suspect]
     Active Substance: IMIQUIMOD
     Indication: ACTINIC KERATOSIS
     Dosage: ONE APPLICATION THREE TIMES A WEEK
     Route: 061
     Dates: start: 20160404, end: 20160425
  3. IMIQUIMOD. [Suspect]
     Active Substance: IMIQUIMOD
     Dosage: 2 PACKS ON PACKET ON FOREHEAD AND ONE ON HAND
     Route: 061
     Dates: start: 201605, end: 201606

REACTIONS (2)
  - Blindness [Unknown]
  - Visual field defect [Not Recovered/Not Resolved]

NARRATIVE: CASE EVENT DATE: 20160618
